FAERS Safety Report 4612755-1 (Version None)
Quarter: 2005Q1

REPORT INFORMATION
  Report Type: 
  Country: None (occurrence: None)
  Receive Date: 20050318
  Receipt Date: 20050124
  Transmission Date: 20050727
  Serious: Yes (Hospitalization, Other)
  Sender: FDA-Public Use
  Company Number: US-MERCK-0501USA03614

PATIENT
  Age: 70 Year
  Sex: Male

DRUGS (10)
  1. ZOCOR [Suspect]
     Indication: BLOOD CHOLESTEROL INCREASED
     Route: 048
     Dates: start: 19970101
  2. ZOCOR [Suspect]
     Indication: HYPERLIPIDAEMIA
     Route: 048
     Dates: start: 19970101
  3. BIAXIN [Suspect]
     Route: 065
     Dates: start: 20050101
  4. ALTACE [Concomitant]
     Route: 065
  5. MICRONASE [Suspect]
     Route: 065
  6. COREG [Concomitant]
     Route: 065
  7. ALLOPURINOL [Suspect]
     Route: 065
  8. COUMADIN [Concomitant]
     Route: 065
  9. DIGOXIN [Concomitant]
     Route: 065
  10. ZITHROMAX [Concomitant]
     Route: 065

REACTIONS (8)
  - ALDOLASE INCREASED [None]
  - BRONCHITIS [None]
  - MYOSITIS [None]
  - RENAL FAILURE ACUTE [None]
  - RHABDOMYOLYSIS [None]
  - SUDDEN DEATH [None]
  - VENTRICULAR FIBRILLATION [None]
  - VENTRICULAR TACHYCARDIA [None]
